FAERS Safety Report 6956229-1 (Version None)
Quarter: 2010Q3

REPORT INFORMATION
  Report Type: 
  Country: None (occurrence: None)
  Receive Date: 20100830
  Receipt Date: 20100824
  Transmission Date: 20110219
  Serious: Yes (Hospitalization, Other)
  Sender: FDA-Public Use
  Company Number: PHHY2010JP55745

PATIENT
  Age: 32 Year
  Sex: Female

DRUGS (4)
  1. BASILIXIMAB [Suspect]
     Indication: RENAL TRANSPLANT
  2. TACROLIMUS [Suspect]
     Dosage: 4 MG, UNK
  3. MYCOPHENOLATE MOFETIL [Suspect]
  4. METHYLPREDNISOLONE [Suspect]
     Dosage: 1 MG, UNK

REACTIONS (16)
  - CAESAREAN SECTION [None]
  - COMPLICATIONS OF TRANSPLANTED KIDNEY [None]
  - CYTOMEGALOVIRUS INFECTION [None]
  - DRUG EXPOSURE DURING PREGNANCY [None]
  - GESTATIONAL HYPERTENSION [None]
  - HAEMODIALYSIS [None]
  - HAEMOLYTIC ANAEMIA [None]
  - KIDNEY TRANSPLANT REJECTION [None]
  - MENTAL DISORDER [None]
  - NEPHROPATHY TOXIC [None]
  - OLIGOHYDRAMNIOS [None]
  - PREMATURE LABOUR [None]
  - PSYCHOTIC DISORDER [None]
  - RENAL GRAFT LOSS [None]
  - THROMBOCYTOPENIA [None]
  - THROMBOTIC MICROANGIOPATHY [None]
